FAERS Safety Report 12613615 (Version 1)
Quarter: 2016Q3

REPORT INFORMATION
  Report Type: Spontaneous
  Country: US (occurrence: US)
  Receive Date: 20160802
  Receipt Date: 20160802
  Transmission Date: 20161109
  Serious: No
  Sender: FDA-Public Use
  Company Number: US-ASTRAZENECA-2016SE60275

PATIENT
  Sex: Male
  Weight: 52.2 kg

DRUGS (1)
  1. TUDORZA PRESSAIR [Suspect]
     Active Substance: ACLIDINIUM BROMIDE
     Indication: CHRONIC OBSTRUCTIVE PULMONARY DISEASE
     Dosage: LOT: 1155793, 400 MCG ONE PUFF TWICE DAILY
     Route: 055
     Dates: start: 201605

REACTIONS (2)
  - Circumstance or information capable of leading to medication error [Recovered/Resolved]
  - Hypoacusis [Not Recovered/Not Resolved]
